FAERS Safety Report 4493996-3 (Version None)
Quarter: 2004Q4

REPORT INFORMATION
  Report Type: 
  Country: None (occurrence: None)
  Receive Date: 20041105
  Receipt Date: 20041025
  Transmission Date: 20050328
  Serious: Yes (Death, Life-Threatening, Hospitalization, Disabling)
  Sender: FDA-Public Use
  Company Number: JP-JNJFOC-20040902762

PATIENT
  Age: 58 Year
  Sex: Female

DRUGS (5)
  1. FENTANYL-TTS [Suspect]
     Indication: PAIN
     Route: 062
     Dates: start: 20031016, end: 20031208
  2. BENZODIAZEPINE [Concomitant]
  3. HYDROXIDINE [Concomitant]
  4. RITALIN [Concomitant]
  5. RINDERON [Concomitant]

REACTIONS (15)
  - ABDOMINAL PAIN [None]
  - ALANINE AMINOTRANSFERASE INCREASED [None]
  - ASPARTATE AMINOTRANSFERASE INCREASED [None]
  - BILE DUCT OBSTRUCTION [None]
  - BLOOD ALKALINE PHOSPHATASE INCREASED [None]
  - BLOOD BILIRUBIN INCREASED [None]
  - CACHEXIA [None]
  - CONSTIPATION [None]
  - DECUBITUS ULCER [None]
  - DISORIENTATION [None]
  - DISSEMINATED INTRAVASCULAR COAGULATION [None]
  - HERPES ZOSTER [None]
  - JAUNDICE [None]
  - LIVER ABSCESS [None]
  - PYREXIA [None]
